FAERS Safety Report 9955213 (Version 2)
Quarter: 2014Q2

REPORT INFORMATION
  Report Type: Spontaneous
  Country: US (occurrence: US)
  Receive Date: 20140304
  Receipt Date: 20140523
  Transmission Date: 20141212
  Serious: Yes (Other)
  Sender: FDA-Public Use
  Company Number: US-PFIZER INC-2014058186

PATIENT
  Sex: Male

DRUGS (1)
  1. SOMAVERT [Suspect]
     Dosage: UNK

REACTIONS (7)
  - Back disorder [Unknown]
  - Infection [Unknown]
  - Arthropathy [Unknown]
  - Neuropathy peripheral [Unknown]
  - Hypoaesthesia [Unknown]
  - Carpal tunnel syndrome [Unknown]
  - Arthritis [Unknown]
